FAERS Safety Report 5146611-X (Version None)
Quarter: 2006Q4

REPORT INFORMATION
  Report Type: 
  Country: None (occurrence: None)
  Receive Date: 20061109
  Receipt Date: 20061027
  Transmission Date: 20070319
  Serious: Yes (Hospitalization, Other)
  Sender: FDA-Public Use
  Company Number: GB-BAYER-200611347BNE

PATIENT
  Age: 67 Year
  Sex: Male

DRUGS (6)
  1. CIPROFLOXACIN [Suspect]
     Indication: INFECTION
     Dates: start: 20060905
  2. GENTAMICIN [Concomitant]
     Indication: INFECTION
  3. PIPERACILLIN AND TAZOBACTAM [Concomitant]
     Route: 042
  4. AUGMENTIN '125' [Concomitant]
  5. HEPARIN [Concomitant]
     Route: 042
  6. MORPHINE [Concomitant]
     Indication: PAIN

REACTIONS (7)
  - CONTUSION [None]
  - DRUG EFFECT DECREASED [None]
  - OEDEMA PERIPHERAL [None]
  - PARAESTHESIA [None]
  - SKIN DISCOLOURATION [None]
  - SKIN EXFOLIATION [None]
  - SKIN ULCER [None]
